FAERS Safety Report 5509275-9 (Version None)
Quarter: 2007Q4

REPORT INFORMATION
  Report Type: 
  Country: None (occurrence: None)
  Receive Date: 20071030
  Receipt Date: 20070717
  Transmission Date: 20080405
  Serious: Yes (Hospitalization, Other)
  Sender: FDA-Public Use
  Company Number: HQWYE186223JUL07

PATIENT
  Age: 60 Year
  Sex: Female

DRUGS (2)
  1. PREMARIN [Suspect]
     Dosage: 0.9 MG DAILY; NOT TAKEN ON A REGULAR BASIS AS DIRECTED OVER THE PAST SIX MONTHS, ORAL
     Route: 048
     Dates: start: 19920101, end: 20070701
  2. MEDROXYPROGESTERONE [Concomitant]

REACTIONS (1)
  - ENDOMETRIAL CANCER [None]
